FAERS Safety Report 17070405 (Version 1)
Quarter: 2019Q4

REPORT INFORMATION
  Report Type: Spontaneous
  Country: US (occurrence: US)
  Receive Date: 20191025
  Receipt Date: 20191025
  Transmission Date: 20200122
  Serious: Yes (Other)
  Sender: FDA-Public Use
  Company Number: None

PATIENT
  Sex: Male

DRUGS (7)
  1. OMNITROPE [Suspect]
     Active Substance: SOMATROPIN
     Indication: BODY HEIGHT BELOW NORMAL
     Route: 058
     Dates: start: 20190424
  2. ALBUTEROL. [Concomitant]
     Active Substance: ALBUTEROL
  3. ADVAIR HFA [Concomitant]
     Active Substance: FLUTICASONE PROPIONATE\SALMETEROL XINAFOATE
  4. OMNITROPE [Suspect]
     Active Substance: SOMATROPIN
     Indication: ENDOCRINE DISORDER
     Route: 058
     Dates: start: 20190424
  5. SINGULAIR [Concomitant]
     Active Substance: MONTELUKAST SODIUM
  6. FLONASE [Concomitant]
     Active Substance: FLUTICASONE PROPIONATE
  7. CETIRIZINE [Concomitant]
     Active Substance: CETIRIZINE HYDROCHLORIDE

REACTIONS (1)
  - Pharyngeal operation [None]
